FAERS Safety Report 19632911 (Version 4)
Quarter: 2021Q3

REPORT INFORMATION
  Report Type: Report from Study
  Country: US (occurrence: US)
  Receive Date: 20210730
  Receipt Date: 20210925
  Transmission Date: 20211014
  Serious: No
  Sender: FDA-Public Use
  Company Number: NVSC2021US167545

PATIENT
  Age: 63 Year
  Sex: Male

DRUGS (2)
  1. ENTRESTO [Suspect]
     Active Substance: SACUBITRIL\VALSARTAN
     Indication: CARDIAC FAILURE
  2. ENTRESTO [Suspect]
     Active Substance: SACUBITRIL\VALSARTAN
     Indication: CARDIAC FAILURE
     Dosage: 1 DF, BID(49.51 MG)
     Route: 048
     Dates: start: 20210707

REACTIONS (8)
  - Depressed mood [Unknown]
  - Somnolence [Recovered/Resolved]
  - Chest discomfort [Unknown]
  - Amnesia [Unknown]
  - Wrong technique in product usage process [Unknown]
  - Sluggishness [Recovered/Resolved]
  - Feeling abnormal [Unknown]
  - Lethargy [Recovered/Resolved]

NARRATIVE: CASE EVENT DATE: 20210708
